FAERS Safety Report 9806304 (Version 1)
Quarter: 2014Q1

REPORT INFORMATION
  Report Type: Spontaneous
  Country: US (occurrence: US)
  Receive Date: 20140109
  Receipt Date: 20140109
  Transmission Date: 20141002
  Serious: No
  Sender: FDA-Public Use
  Company Number: US-009507513-1401USA002824

PATIENT
  Age: 12 Year
  Sex: Female

DRUGS (2)
  1. ASMANEX TWISTHALER [Suspect]
     Dosage: UNK, BID;AEROSOL; 1 TO 2 PUFFS TWICE A DAY
     Route: 055
     Dates: start: 201309
  2. ASMANEX TWISTHALER [Suspect]
     Dosage: UNK
     Route: 055

REACTIONS (3)
  - Drug dose omission [Unknown]
  - Product quality issue [Unknown]
  - No adverse event [Unknown]
